FAERS Safety Report 9275619 (Version 1)
Quarter: 2013Q2

REPORT INFORMATION
  Report Type: Spontaneous
  Country: US (occurrence: None)
  Receive Date: 20130502
  Receipt Date: 20130502
  Transmission Date: 20140414
  Serious: No
  Sender: FDA-Public Use
  Company Number: None

PATIENT
  Age: 16 Year
  Sex: Female
  Weight: 42.7 kg

DRUGS (1)
  1. FANAPT [Suspect]
     Dosage: 3 MG  BID  PO
     Route: 048
     Dates: start: 20130408, end: 20130422

REACTIONS (1)
  - Hypotension [None]
